FAERS Safety Report 13123326 (Version 1)
Quarter: 2017Q1

REPORT INFORMATION
  Report Type: Spontaneous
  Country: US (occurrence: US)
  Receive Date: 20170117
  Receipt Date: 20170117
  Transmission Date: 20170428
  Serious: Yes (Hospitalization)
  Sender: FDA-Public Use
  Company Number: US-VERTEX PHARMACEUTICALS-2017-000214

PATIENT
  Sex: Male

DRUGS (5)
  1. ORKAMBI [Suspect]
     Active Substance: IVACAFTOR\LUMACAFTOR
     Indication: CYSTIC FIBROSIS
     Dosage: 2 DF (200-125 EACH) MG, BID
     Route: 048
     Dates: start: 201508
  2. PULMOZYME [Concomitant]
     Active Substance: DORNASE ALFA
  3. MVI [Concomitant]
     Active Substance: VITAMINS
  4. VENTOLIN [Concomitant]
     Active Substance: ALBUTEROL SULFATE
  5. CALCIUM + VITAMIN D [Concomitant]
     Active Substance: CALCIUM\VITAMIN D

REACTIONS (1)
  - Infection [Unknown]
